FAERS Safety Report 4519929-9 (Version None)
Quarter: 2004Q4

REPORT INFORMATION
  Report Type: 
  Country: None (occurrence: None)
  Receive Date: 20041207
  Receipt Date: 20041119
  Transmission Date: 20050328
  Serious: Yes (Death)
  Sender: FDA-Public Use
  Company Number: IT-ROCHE-386778

PATIENT
  Age: 91 Year
  Sex: Female

DRUGS (7)
  1. TORADOL [Suspect]
     Indication: PAIN
     Route: 030
     Dates: start: 20041025, end: 20041028
  2. PREXAN [Suspect]
     Indication: PAIN
     Route: 048
     Dates: start: 20041021, end: 20041027
  3. ASPIRINETTA [Suspect]
     Indication: PROPHYLAXIS
     Route: 048
     Dates: start: 20040101, end: 20041028
  4. NITRODERM [Concomitant]
     Route: 062
  5. TAREG [Concomitant]
     Route: 048
  6. LASIX [Concomitant]
  7. ZYLORIC [Concomitant]

REACTIONS (1)
  - ANAEMIA [None]
